FAERS Safety Report 6615993-1 (Version None)
Quarter: 2010Q1

REPORT INFORMATION
  Report Type: 
  Country: None (occurrence: None)
  Receive Date: 20100305
  Receipt Date: 20100226
  Transmission Date: 20100710
  Serious: Yes (Other)
  Sender: FDA-Public Use
  Company Number: A0848381A

PATIENT
  Age: 79 Year
  Sex: Female

DRUGS (3)
  1. PROMACTA [Suspect]
     Indication: DRUG USE FOR UNKNOWN INDICATION
     Dosage: 50MG PER DAY
     Route: 048
     Dates: start: 20091001
  2. IMURAN [Concomitant]
  3. PREDNISONE [Concomitant]

REACTIONS (3)
  - ANAEMIA [None]
  - DRUG INEFFECTIVE [None]
  - PLATELET COUNT ABNORMAL [None]
